FAERS Safety Report 5691598-4 (Version None)
Quarter: 2008Q2

REPORT INFORMATION
  Report Type: 
  Country: None (occurrence: None)
  Receive Date: 20080402
  Receipt Date: 20080324
  Transmission Date: 20081010
  Serious: Yes (Hospitalization, Other)
  Sender: FDA-Public Use
  Company Number: US-AMGEN-QUU267200

PATIENT
  Sex: Female
  Weight: 111.7 kg

DRUGS (14)
  1. ENBREL [Suspect]
     Indication: RHEUMATOID ARTHRITIS
     Route: 058
     Dates: start: 20070716, end: 20071001
  2. PLAQUENIL [Concomitant]
     Dates: start: 20060201
  3. RESTASIS [Concomitant]
  4. LORTAB [Concomitant]
  5. LIORESAL [Concomitant]
  6. HYDROCHLOROTHIAZIDE [Concomitant]
  7. SYNTHROID [Concomitant]
  8. ZOFRAN [Concomitant]
  9. PROTONIX [Concomitant]
  10. CLARITIN [Concomitant]
  11. PROZAC [Concomitant]
  12. REQUIP [Concomitant]
  13. BENTYL [Concomitant]
  14. ULTRAM [Concomitant]

REACTIONS (18)
  - ANXIETY [None]
  - ARTHRALGIA [None]
  - ASTHENIA [None]
  - CHANGE OF BOWEL HABIT [None]
  - DEPRESSION [None]
  - DYSPEPSIA [None]
  - HORMONE LEVEL ABNORMAL [None]
  - INCREASED APPETITE [None]
  - LUMBAR SPINAL STENOSIS [None]
  - MEMORY IMPAIRMENT [None]
  - MUSCULAR WEAKNESS [None]
  - NASAL CONGESTION [None]
  - NAUSEA [None]
  - OEDEMA PERIPHERAL [None]
  - PAIN IN EXTREMITY [None]
  - RESTLESS LEGS SYNDROME [None]
  - RHINORRHOEA [None]
  - WOUND INFECTION STAPHYLOCOCCAL [None]
